FAERS Safety Report 10709548 (Version 1)
Quarter: 2015Q1

REPORT INFORMATION
  Report Type: Spontaneous
  Country: US (occurrence: None)
  Receive Date: 20150113
  Receipt Date: 20150113
  Transmission Date: 20150721
  Serious: No
  Sender: FDA-Public Use
  Company Number: None

PATIENT
  Sex: Male

DRUGS (1)
  1. CAPECITABINE. [Suspect]
     Active Substance: CAPECITABINE
     Indication: CHEST PAIN
     Dosage: 500 MG TAB  TAKE 1 TABLET (500MG) BY MOUTH IN THE MORNING AND 2 TABLETS (1000MG) IN THE EVENING FOR 14 DAYS ON AND 7 DAYS OFF AS DIRECTED.?
     Route: 048

REACTIONS (1)
  - Chest discomfort [None]
